APPROVED DRUG PRODUCT: FERRIPROX
Active Ingredient: DEFERIPRONE
Strength: 100MG/ML
Dosage Form/Route: SOLUTION;ORAL
Application: N208030 | Product #001
Applicant: CHIESI USA INC
Approved: Sep 9, 2015 | RLD: Yes | RS: Yes | Type: RX

PATENTS:
Patent 8703156 | Expires: Oct 26, 2029

EXCLUSIVITY:
Code: ODE-417 | Date: Apr 30, 2028
Code: ODE-418 | Date: Apr 30, 2028
Code: ODE-419 | Date: Apr 30, 2028